FAERS Safety Report 16070341 (Version 3)
Quarter: 2019Q4

REPORT INFORMATION
  Report Type: Spontaneous
  Country: US (occurrence: US)
  Receive Date: 20190314
  Receipt Date: 20191001
  Transmission Date: 20200122
  Serious: No
  Sender: FDA-Public Use
  Company Number: US-HTU-2018US018201

PATIENT
  Sex: Male

DRUGS (4)
  1. VALCHLOR [Suspect]
     Active Substance: MECHLORETHAMINE
     Dosage: THIN FILM, 3/WEEK FOR A WEEK
     Route: 061
  2. VALCHLOR [Suspect]
     Active Substance: MECHLORETHAMINE
     Dosage: THIN FIM, 2/WEEK FOR A WEEK
     Route: 061
  3. CLOBETASOL [Suspect]
     Active Substance: CLOBETASOL
     Dosage: UNK, 3/WEEK
     Route: 061
  4. VALCHLOR [Suspect]
     Active Substance: MECHLORETHAMINE
     Indication: CUTANEOUS T-CELL LYMPHOMA
     Dosage: THIN FILM, 1/WEEK FOR ONE WEEK
     Route: 061
     Dates: start: 20181019

REACTIONS (8)
  - Body tinea [Unknown]
  - Erythema [Unknown]
  - Drug ineffective for unapproved indication [Unknown]
  - Skin burning sensation [Unknown]
  - Pain [Unknown]
  - Dermatitis [Unknown]
  - Blister [Unknown]
  - Pain of skin [Unknown]
